FAERS Safety Report 5217955-8 (Version None)
Quarter: 2007Q1

REPORT INFORMATION
  Report Type: 
  Country: None (occurrence: None)
  Receive Date: 20070124
  Receipt Date: 20070115
  Transmission Date: 20070707
  Serious: Yes (Other)
  Sender: FDA-Public Use
  Company Number: PHBS2007ES01004

PATIENT
  Age: 76 Year
  Sex: Male

DRUGS (8)
  1. EXELON [Suspect]
     Indication: DEMENTIA ALZHEIMER'S TYPE
     Dosage: 4.5 MG/D
     Route: 065
  2. EXELON [Suspect]
     Dosage: 1.5 MG/D
     Route: 065
     Dates: start: 20061201
  3. SINEMET [Concomitant]
     Indication: PARKINSON'S DISEASE
     Dosage: UNK, TID
     Route: 065
  4. SERTRALINE [Concomitant]
     Indication: OBSESSIVE-COMPULSIVE DISORDER
     Dosage: 100 MG/24 HOURS
     Route: 065
  5. FLUOXETINE [Concomitant]
     Indication: OBSESSIVE-COMPULSIVE DISORDER
     Dosage: 20 MG, TID
     Route: 065
  6. FLUOXETINE [Concomitant]
     Dosage: 20 MG/24 HOURS
     Route: 065
  7. QUETIAPINE FUMARATE [Concomitant]
     Indication: OBSESSIVE-COMPULSIVE DISORDER
     Dosage: 25 MG, BID
     Route: 065
  8. CLORAZEPATE [Concomitant]
     Indication: OBSESSIVE-COMPULSIVE DISORDER
     Dosage: 5 MG, TID
     Route: 065

REACTIONS (3)
  - CONCOMITANT DISEASE PROGRESSION [None]
  - CONFUSIONAL STATE [None]
  - OBSESSIVE-COMPULSIVE DISORDER [None]
